FAERS Safety Report 20844070 (Version 3)
Quarter: 2022Q2

REPORT INFORMATION
  Report Type: Report from Study
  Country: US (occurrence: US)
  Receive Date: 20220518
  Receipt Date: 20220527
  Transmission Date: 20220720
  Serious: No
  Sender: FDA-Public Use
  Company Number: US-NOVARTISTESTPH-NVSC2022US114756

PATIENT
  Sex: Female

DRUGS (2)
  1. ZORTRESS [Suspect]
     Active Substance: EVEROLIMUS
     Indication: Product used for unknown indication
     Dosage: UNK
     Route: 048
  2. ZORTRESS [Suspect]
     Active Substance: EVEROLIMUS
     Dosage: 0.5 MG, TAKE FOUR TABLETS BY MOUTH TWICE DAILY
     Route: 048
     Dates: start: 20210603, end: 20220421

REACTIONS (2)
  - Headache [Unknown]
  - Incorrect dose administered [Unknown]
